FAERS Safety Report 5737084-4 (Version None)
Quarter: 2008Q2

REPORT INFORMATION
  Report Type: 
  Country: None (occurrence: None)
  Receive Date: 20080514
  Receipt Date: 20080506
  Transmission Date: 20081010
  Serious: Yes (Other)
  Sender: FDA-Public Use
  Company Number: US-JNJFOC-20080104014

PATIENT
  Age: 55 Year
  Sex: Male

DRUGS (4)
  1. REMICADE [Suspect]
     Indication: PSORIATIC ARTHROPATHY
     Route: 042
  2. PLETAL [Concomitant]
  3. DAYPRO [Concomitant]
  4. CORTICOSTEROIDS [Concomitant]

REACTIONS (6)
  - ANTINUCLEAR ANTIBODY [None]
  - BLOOD IMMUNOGLOBULIN A INCREASED [None]
  - BLOOD TESTOSTERONE DECREASED [None]
  - PYODERMA GANGRENOSUM [None]
  - THYROIDITIS [None]
  - VITILIGO [None]
